FAERS Safety Report 5921398-9 (Version None)
Quarter: 2008Q4

REPORT INFORMATION
  Report Type: 
  Country: None (occurrence: None)
  Receive Date: 20081014
  Receipt Date: 20081006
  Transmission Date: 20090506
  Serious: Yes (Other)
  Sender: FDA-Public Use
  Company Number: 2008AL010588

PATIENT
  Age: 49 Year
  Sex: Female
  Weight: 86.1834 kg

DRUGS (6)
  1. DIGOXIN [Suspect]
     Indication: CARDIOMYOPATHY
     Dosage: 0.25MG, DAILY, PO
     Route: 048
     Dates: start: 19930101
  2. TOPROL-XL [Concomitant]
  3. LISINOPRIL [Concomitant]
  4. SYNTHROID [Concomitant]
  5. ARIMIDEX [Concomitant]
  6. METFORMIN HYDROCHLORIDE [Concomitant]

REACTIONS (6)
  - CARDIOACTIVE DRUG LEVEL INCREASED [None]
  - DIABETES MELLITUS [None]
  - DIZZINESS [None]
  - SYNCOPE [None]
  - VERTIGO [None]
  - VOMITING [None]
